FAERS Safety Report 6169591-7 (Version None)
Quarter: 2009Q2

REPORT INFORMATION
  Report Type: 
  Country: None (occurrence: None)
  Receive Date: 20090424
  Receipt Date: 20090213
  Transmission Date: 20091009
  Serious: No
  Sender: FDA-Public Use
  Company Number: SPV1-2009-00246

PATIENT
  Age: 20 Year
  Sex: Female
  Weight: 77.1 kg

DRUGS (4)
  1. VYVANSE [Suspect]
     Indication: ATTENTION DEFICIT/HYPERACTIVITY DISORDER
     Dosage: 50 MG, 1X/DAY:QD, ORAL ; 60 MG, 1X/DAY:QD, ORAL
     Route: 048
     Dates: start: 20080401, end: 20090205
  2. VYVANSE [Suspect]
     Indication: ATTENTION DEFICIT/HYPERACTIVITY DISORDER
     Dosage: 50 MG, 1X/DAY:QD, ORAL ; 60 MG, 1X/DAY:QD, ORAL
     Route: 048
     Dates: start: 20090206
  3. YAZ [Concomitant]
  4. PRENATAL VITAMINS (ASCORBIC ACID, BIOTIN, MINERALS NOS, NICOTINIC ACID [Concomitant]

REACTIONS (5)
  - DRUG EFFECT DECREASED [None]
  - MIGRAINE [None]
  - NAUSEA [None]
  - TENSION HEADACHE [None]
  - WITHDRAWAL SYNDROME [None]
